FAERS Safety Report 5862648-7 (Version None)
Quarter: 2008Q3

REPORT INFORMATION
  Report Type: 
  Country: None (occurrence: None)
  Receive Date: 20080827
  Receipt Date: 20080827
  Transmission Date: 20090109
  Serious: Yes (Hospitalization)
  Sender: FDA-Public Use
  Company Number: None

PATIENT
  Age: 67 Year
  Sex: Male
  Weight: 84.8226 kg

DRUGS (19)
  1. BEVACIZUMAB GENENTECH [Suspect]
     Indication: NON-SMALL CELL LUNG CANCER
     Dosage: 15 MG/KG ONCE EVERY 3 WEEKS IV DRIP
     Route: 041
     Dates: start: 20080215, end: 20080620
  2. BORTEZOMIB MILLENIUM [Suspect]
     Indication: NON-SMALL CELL LUNG CANCER
     Dosage: 1.3 MG/M2 WEEKLY X2 WEEKS IV BOLUS
     Route: 040
     Dates: start: 20080215, end: 20080620
  3. CARBOPLATIN [Concomitant]
  4. LISINOPRIL [Concomitant]
  5. SIMVASTIN [Concomitant]
  6. METPROLOL [Concomitant]
  7. OXYCODONE HCL [Concomitant]
  8. ISOSORBIDE [Concomitant]
  9. OXYCONTIN [Concomitant]
  10. NITROGLYCERIN [Concomitant]
  11. PROTONIX [Concomitant]
  12. ACTOS [Concomitant]
  13. ZOFRAN [Concomitant]
  14. GLIMEPIRIDE [Concomitant]
  15. ASPIRIN [Concomitant]
  16. GLIPIZIDE [Concomitant]
  17. RANITIDINE [Concomitant]
  18. METFORMIN HCL [Concomitant]
  19. LORZEPAM [Concomitant]

REACTIONS (2)
  - COELIAC ARTERY STENOSIS [None]
  - METASTASES TO PANCREAS [None]
